FAERS Safety Report 7052503-1 (Version None)
Quarter: 2010Q4

REPORT INFORMATION
  Report Type: 
  Country: None (occurrence: None)
  Receive Date: 20101019
  Receipt Date: 20101012
  Transmission Date: 20110411
  Serious: Yes (Other)
  Sender: FDA-Public Use
  Company Number: GR-PFIZER INC-2010129276

PATIENT
  Age: 85 Year
  Sex: Female

DRUGS (2)
  1. CLINDAMYCIN HCL [Suspect]
     Indication: RESPIRATORY TRACT INFECTION
     Dosage: 300 MG, 3X/DAY
     Route: 048
     Dates: start: 20100901, end: 20100901
  2. ZANTAC [Concomitant]
     Dosage: UNK
     Route: 048

REACTIONS (5)
  - DERMATITIS BULLOUS [None]
  - DYSPNOEA [None]
  - OEDEMA PERIPHERAL [None]
  - OESOPHAGEAL PAIN [None]
  - RASH GENERALISED [None]
